FAERS Safety Report 8214235-3 (Version None)
Quarter: 2012Q1

REPORT INFORMATION
  Report Type: 
  Country: None (occurrence: None)
  Receive Date: 20120316
  Receipt Date: 20120308
  Transmission Date: 20120608
  Serious: Yes (Hospitalization)
  Sender: FDA-Public Use
  Company Number: US-BAYER-2011-078677

PATIENT
  Age: 35 Year
  Sex: Female
  Weight: 120 kg

DRUGS (7)
  1. ASPIRIN [Concomitant]
  2. WELLBUTRIN SR [Concomitant]
     Dosage: 150 MG, DAILY
     Route: 048
  3. ALDACTONE [Concomitant]
  4. YASMIN [Suspect]
     Dosage: UNK
     Dates: start: 20040401, end: 20060817
  5. GEODON [Concomitant]
     Dosage: 40 MG, AT BEDTIME
  6. MOTRIN [Concomitant]
     Indication: PAIN IN EXTREMITY
  7. LAMICTAL [Concomitant]
     Dosage: 100 MG, AT BEDTIME
     Route: 048

REACTIONS (28)
  - DEEP VEIN THROMBOSIS [None]
  - DIZZINESS [None]
  - PRESYNCOPE [None]
  - CHEST PAIN [None]
  - INJURY [None]
  - MUSCULOSKELETAL STIFFNESS [None]
  - DRUG HYPERSENSITIVITY [None]
  - PAIN [None]
  - EMOTIONAL DISTRESS [None]
  - INTERNATIONAL NORMALISED RATIO DECREASED [None]
  - PHLEBITIS SUPERFICIAL [None]
  - SOMNOLENCE [None]
  - SLEEP APNOEA SYNDROME [None]
  - TREMOR [None]
  - GENERAL PHYSICAL HEALTH DETERIORATION [None]
  - UNEVALUABLE EVENT [None]
  - HEADACHE [None]
  - INTERVERTEBRAL DISC PROTRUSION [None]
  - PAIN IN EXTREMITY [None]
  - ANXIETY [None]
  - NECK PAIN [None]
  - SNORING [None]
  - VAGINAL HAEMORRHAGE [None]
  - POLYCYSTIC OVARIES [None]
  - MUSCULOSKELETAL PAIN [None]
  - MUSCLE SPASMS [None]
  - INJECTION SITE URTICARIA [None]
  - CALCULUS URETERIC [None]
